FAERS Safety Report 6158670-6 (Version None)
Quarter: 2009Q2

REPORT INFORMATION
  Report Type: 
  Country: None (occurrence: None)
  Receive Date: 20090417
  Receipt Date: 20090413
  Transmission Date: 20091009
  Serious: Yes (Hospitalization)
  Sender: FDA-Public Use
  Company Number: A0621488A

PATIENT
  Age: 71 Year
  Sex: Male

DRUGS (28)
  1. ADVAIR HFA [Suspect]
     Indication: DRUG USE FOR UNKNOWN INDICATION
     Route: 055
     Dates: start: 20070101
  2. SEREVENT [Suspect]
     Indication: ASTHMA
     Route: 055
     Dates: start: 19960101
  3. ALBUTEROL [Suspect]
     Indication: ASTHMA
     Route: 055
  4. UNSPECIFIED MEDICATIONS [Concomitant]
  5. ASMANEX TWISTHALER [Concomitant]
  6. ZYRTEC [Concomitant]
  7. XOPENEX [Concomitant]
  8. NASONEX [Concomitant]
  9. SINGULAIR [Concomitant]
  10. DIAZEPAM [Concomitant]
  11. TRILEPTAL [Concomitant]
  12. SIMVASTATIN [Concomitant]
  13. EFFEXOR [Concomitant]
  14. FUROSEMIDE [Concomitant]
  15. NORVASC [Concomitant]
  16. ATENOLOL [Concomitant]
  17. DIGOXIN [Concomitant]
  18. DIOVAN [Concomitant]
  19. PLAVIX [Concomitant]
  20. MORPHINE [Concomitant]
  21. KLOR-CON [Concomitant]
  22. FLOMAX [Concomitant]
  23. AMBIEN [Concomitant]
  24. AMITRIPTLINE HYDROCHLORIDE TAB [Concomitant]
  25. DULCOLAX [Concomitant]
  26. NYSTATIN [Concomitant]
  27. ALLERGY INJECTION [Concomitant]
  28. GLIMEPIRIDE [Concomitant]

REACTIONS (13)
  - ANOSMIA [None]
  - APTYALISM [None]
  - ASTHMA [None]
  - CANDIDIASIS [None]
  - DENTAL CARIES [None]
  - DRUG INEFFECTIVE [None]
  - NASAL POLYPS [None]
  - NASAL SEPTUM DEVIATION [None]
  - NERVOUSNESS [None]
  - PNEUMONIA [None]
  - STOMATITIS [None]
  - TOOTH DISCOLOURATION [None]
  - TOOTH EROSION [None]
